FAERS Safety Report 23539889 (Version 2)
Quarter: 2024Q2

REPORT INFORMATION
  Report Type: Spontaneous
  Country: US (occurrence: US)
  Receive Date: 20240219
  Receipt Date: 20240417
  Transmission Date: 20240716
  Serious: Yes (Other)
  Sender: FDA-Public Use
  Company Number: US-BRISTOL-MYERS SQUIBB COMPANY-2024-024986

PATIENT
  Age: 57 Year
  Sex: Male

DRUGS (2)
  1. POMALYST [Suspect]
     Active Substance: POMALIDOMIDE
     Indication: Plasma cell myeloma
     Route: 048
  2. POMALYST [Suspect]
     Active Substance: POMALIDOMIDE
     Indication: Iron deficiency anaemia
     Dosage: DAILY FOR 21 DAYS ON AND 7 DAYS OFF
     Route: 048

REACTIONS (5)
  - Upper respiratory tract infection [Unknown]
  - Neutropenia [Unknown]
  - Epistaxis [Unknown]
  - Haemoptysis [Unknown]
  - Peripheral swelling [Unknown]
